FAERS Safety Report 7281203-8 (Version None)
Quarter: 2011Q1

REPORT INFORMATION
  Report Type: 
  Country: None (occurrence: None)
  Receive Date: 20110208
  Receipt Date: 20110131
  Transmission Date: 20110831
  Serious: Yes (Death, Other)
  Sender: FDA-Public Use
  Company Number: CHPA2011US02090

PATIENT
  Age: 41 Year
  Sex: Female

DRUGS (7)
  1. CLONAZEPAM [Suspect]
     Route: 048
  2. DIPHENHYDRAMINE [Suspect]
     Route: 048
  3. PREDNISONE [Suspect]
     Route: 048
  4. ACETAMINOPHEN AND HYDROCODONE BITARTRATE [Suspect]
     Route: 048
  5. AMITRIPTYLINE HCL [Suspect]
     Route: 048
  6. FLUOXETINE [Suspect]
     Dosage: UNK
     Route: 048
  7. TRAZODONE [Suspect]
     Route: 048

REACTIONS (2)
  - CARDIO-RESPIRATORY ARREST [None]
  - COMPLETED SUICIDE [None]
